FAERS Safety Report 9160396 (Version 1)
Quarter: 2013Q1

REPORT INFORMATION
  Report Type: Spontaneous
  Country: DK (occurrence: None)
  Receive Date: 20130215
  Receipt Date: 20130215
  Transmission Date: 20140127
  Serious: Yes (Other)
  Sender: FDA-Public Use
  Company Number: 2013MA001150

PATIENT
  Age: 69 Year
  Sex: Male

DRUGS (2)
  1. OXALIPLATIN FOR INJECTION USP 100MG SINGLE-DOSE VIALS (ATLLC) (OXALIPLATIN) [Suspect]
     Route: 042
     Dates: start: 20111101, end: 20120420
  2. FLUOROURACIL [Concomitant]

REACTIONS (1)
  - Hypokalaemic syndrome [None]
